FAERS Safety Report 6165194-9 (Version None)
Quarter: 2009Q2

REPORT INFORMATION
  Report Type: 
  Country: None (occurrence: None)
  Receive Date: 20090423
  Receipt Date: 20090417
  Transmission Date: 20091009
  Serious: Yes (Other)
  Sender: FDA-Public Use
  Company Number: GB-TEVA-192008ISR

PATIENT
  Age: 1 Year

DRUGS (4)
  1. METHOTREXATE [Suspect]
     Indication: STEM CELL TRANSPLANT
  2. PREDNISOLONE [Suspect]
     Indication: STEM CELL TRANSPLANT
  3. CYCLOSPORINE [Suspect]
     Indication: BONE MARROW TRANSPLANT
  4. CYCLOSPORINE [Suspect]
     Indication: PROPHYLAXIS AGAINST GRAFT VERSUS HOST DISEASE

REACTIONS (1)
  - CYTOMEGALOVIRUS INFECTION [None]
